FAERS Safety Report 6816016-1 (Version None)
Quarter: 2010Q3

REPORT INFORMATION
  Report Type: 
  Country: None (occurrence: None)
  Receive Date: 20100705
  Receipt Date: 20100624
  Transmission Date: 20110219
  Serious: No
  Sender: FDA-Public Use
  Company Number: US-BIOGENIDEC-2010BI022110

PATIENT
  Age: 56 Year
  Sex: Female

DRUGS (3)
  1. TYSABRI [Suspect]
     Indication: MULTIPLE SCLEROSIS
     Route: 042
     Dates: start: 20080104
  2. LISINOPRIL [Concomitant]
     Dates: end: 20100621
  3. LISINOPRIL [Concomitant]
     Dates: start: 20100621

REACTIONS (4)
  - ALOPECIA [None]
  - BLOOD PRESSURE DECREASED [None]
  - FALL [None]
  - JOINT SPRAIN [None]
